FAERS Safety Report 17445262 (Version 9)
Quarter: 2020Q4

REPORT INFORMATION
  Report Type: Spontaneous
  Country: US (occurrence: US)
  Receive Date: 20200221
  Receipt Date: 20201029
  Transmission Date: 20210113
  Serious: No
  Sender: FDA-Public Use
  Company Number: US-PFIZER INC-2020078350

PATIENT
  Age: 82 Year
  Sex: Female

DRUGS (4)
  1. XELJANZ XR [Suspect]
     Active Substance: TOFACITINIB CITRATE
     Dosage: 22 MG, UNK
     Dates: start: 202003, end: 202003
  2. XELJANZ XR [Suspect]
     Active Substance: TOFACITINIB CITRATE
     Dosage: 11 MG, UNK
     Dates: start: 202003
  3. XELJANZ XR [Suspect]
     Active Substance: TOFACITINIB CITRATE
     Dosage: 11 MG
     Dates: start: 202008
  4. XELJANZ XR [Suspect]
     Active Substance: TOFACITINIB CITRATE
     Dosage: 11 MG, UNK

REACTIONS (9)
  - Peripheral swelling [Not Recovered/Not Resolved]
  - Hypertension [Unknown]
  - Abdominal discomfort [Recovering/Resolving]
  - Body temperature decreased [Unknown]
  - Rash erythematous [Unknown]
  - Bladder disorder [Unknown]
  - Malaise [Unknown]
  - Dyspnoea [Unknown]
  - Intentional product use issue [Unknown]
